FAERS Safety Report 11326020 (Version 1)
Quarter: 2015Q3

REPORT INFORMATION
  Report Type: Spontaneous
  Country: US (occurrence: None)
  Receive Date: 20150729
  Receipt Date: 20150729
  Transmission Date: 20151125
  Serious: Yes (Hospitalization, Other)
  Sender: FDA-Public Use
  Company Number: EY-BP-US-2015-094

PATIENT
  Age: 29 Year
  Sex: 0

DRUGS (5)
  1. BUPRENORPHINE. [Suspect]
     Active Substance: BUPRENORPHINE
     Indication: PRODUCT USED FOR UNKNOWN INDICATION
  2. MIPROCIN/4-HYDROXY-MIPT [Concomitant]
  3. 5-METHOXY-DALT [Concomitant]
  4. ETIZOLAM [Concomitant]
     Active Substance: ETIZOLAM
  5. 3-METHOXY-PCP [Concomitant]

REACTIONS (7)
  - Catatonia [None]
  - Disease recurrence [None]
  - Amnesia [None]
  - Drug withdrawal syndrome [None]
  - Hallucination, visual [None]
  - Psychotic disorder [None]
  - Seizure [None]

NARRATIVE: CASE EVENT DATE: 201408
